FAERS Safety Report 7309179-5 (Version None)
Quarter: 2011Q1

REPORT INFORMATION
  Report Type: 
  Country: None (occurrence: None)
  Receive Date: 20110223
  Receipt Date: 20110223
  Transmission Date: 20110831
  Serious: Yes (Life-Threatening, Hospitalization, Disabling)
  Sender: FDA-Public Use
  Company Number: GB-EISAI INC-E2020-08636-SPO-GB

PATIENT
  Age: 72 Year
  Sex: Male

DRUGS (12)
  1. FOLIC ACID [Concomitant]
  2. METHOTREXATE [Concomitant]
  3. ATORVASTAIN [Concomitant]
  4. CO-CODAMOL [Concomitant]
  5. DOXAZOSIN [Concomitant]
  6. ASPIRIN [Concomitant]
  7. METFORMIN [Concomitant]
  8. RAMIPRIL [Concomitant]
  9. DONEPEZIL HCL [Suspect]
     Indication: DEMENTIA ALZHEIMER'S TYPE
     Route: 048
     Dates: start: 20101214, end: 20110124
  10. CITALOPRAM [Concomitant]
  11. GLYCERYL TRINITRATE [Concomitant]
  12. ATENOLOL [Concomitant]

REACTIONS (1)
  - COMA [None]
